FAERS Safety Report 5050056-0 (Version None)
Quarter: 2006Q2

REPORT INFORMATION
  Report Type: 
  Country: None (occurrence: None)
  Receive Date: 20060601
  Receipt Date: 20060228
  Transmission Date: 20061013
  Serious: No
  Sender: FDA-Public Use
  Company Number: US200602005617

PATIENT
  Sex: Female

DRUGS (3)
  1. CYMBALTA [Suspect]
     Indication: NEURALGIA
     Dosage: 60 MG, 2/D
     Dates: start: 20050101, end: 20060201
  2. NEURONTIN [Concomitant]
  3. VICODIN [Concomitant]

REACTIONS (1)
  - PAIN [None]
